FAERS Safety Report 13034105 (Version 1)
Quarter: 2016Q4

REPORT INFORMATION
  Report Type: Spontaneous
  Country: US (occurrence: US)
  Receive Date: 20161215
  Receipt Date: 20161215
  Transmission Date: 20170207
  Serious: Yes (Hospitalization)
  Sender: FDA-Public Use
  Company Number: None

PATIENT
  Age: 75 Year
  Sex: Female

DRUGS (14)
  1. TRIAMTERENE AND HYDROCHLOROTHIAZIDE [Concomitant]
     Active Substance: HYDROCHLOROTHIAZIDE\TRIAMTERENE
  2. BACTRIM [Concomitant]
     Active Substance: SULFAMETHOXAZOLE\TRIMETHOPRIM
  3. CYANOCOBALAMIN. [Suspect]
     Active Substance: CYANOCOBALAMIN
  4. FERROUS SULFATE. [Concomitant]
     Active Substance: FERROUS SULFATE
  5. PROTONIX [Concomitant]
     Active Substance: PANTOPRAZOLE SODIUM
  6. FLUOXETINE [Concomitant]
     Active Substance: FLUOXETINE HYDROCHLORIDE
  7. REVLIMID [Suspect]
     Active Substance: LENALIDOMIDE
     Indication: PLASMA CELL MYELOMA
     Route: 048
     Dates: start: 20161121
  8. ONDANSETRON [Concomitant]
     Active Substance: ONDANSETRON
  9. DEXAMETHASONE. [Concomitant]
     Active Substance: DEXAMETHASONE
  10. GABAPENTIN. [Concomitant]
     Active Substance: GABAPENTIN
  11. ASPIRIN. [Concomitant]
     Active Substance: ASPIRIN
  12. LISINOPRIL. [Concomitant]
     Active Substance: LISINOPRIL
  13. ACYCLOVIR. [Concomitant]
     Active Substance: ACYCLOVIR
  14. HYDRALAZINE [Concomitant]
     Active Substance: HYDRALAZINE HYDROCHLORIDE

REACTIONS (6)
  - Dehydration [None]
  - Syncope [None]
  - Presyncope [None]
  - Blood creatinine increased [None]
  - Fall [None]
  - Blood urea increased [None]

NARRATIVE: CASE EVENT DATE: 20161210
